FAERS Safety Report 6191461-9 (Version None)
Quarter: 2009Q2

REPORT INFORMATION
  Report Type: 
  Country: None (occurrence: None)
  Receive Date: 20090515
  Receipt Date: 20090508
  Transmission Date: 20091009
  Serious: Yes (Other)
  Sender: FDA-Public Use
  Company Number: SE-JNJFOC-20090501991

PATIENT

DRUGS (2)
  1. DOXORUBICIN HYDROCHLORIDE [Suspect]
     Dosage: CYCLE 2
     Route: 042
  2. DOXORUBICIN HYDROCHLORIDE [Suspect]
     Indication: SARCOMA METASTATIC
     Dosage: CYCLE 1
     Route: 042

REACTIONS (2)
  - OESOPHAGEAL ULCER [None]
  - OFF LABEL USE [None]
